FAERS Safety Report 21865803 (Version 11)
Quarter: 2025Q3

REPORT INFORMATION
  Report Type: Report from Study
  Country: US (occurrence: US)
  Receive Date: 20230116
  Receipt Date: 20250701
  Transmission Date: 20251021
  Serious: Yes (Hospitalization, Other)
  Sender: TAKEDA
  Company Number: US-TAKEDA-US202031634

PATIENT
  Age: 69 Year
  Sex: Female

DRUGS (4)
  1. HUMAN IMMUNOGLOBULIN G\HYALURONIDASE RECOMBINANT HUMAN [Suspect]
     Active Substance: HUMAN IMMUNOGLOBULIN G\HYALURONIDASE (HUMAN RECOMBINANT)
     Indication: Immunodeficiency common variable
  2. HUMAN IMMUNOGLOBULIN G\HYALURONIDASE RECOMBINANT HUMAN [Suspect]
     Active Substance: HUMAN IMMUNOGLOBULIN G\HYALURONIDASE (HUMAN RECOMBINANT)
     Indication: Primary immunodeficiency syndrome
     Dosage: UNK UNK, MONTHLY
  3. HUMAN IMMUNOGLOBULIN G\HYALURONIDASE RECOMBINANT HUMAN [Suspect]
     Active Substance: HUMAN IMMUNOGLOBULIN G\HYALURONIDASE (HUMAN RECOMBINANT)
  4. ABILIFY [Suspect]
     Active Substance: ARIPIPRAZOLE
     Indication: Product used for unknown indication

REACTIONS (24)
  - Nephrolithiasis [Recovering/Resolving]
  - COVID-19 [Unknown]
  - Cardiac failure congestive [Unknown]
  - Temperature intolerance [Unknown]
  - Gastrointestinal pain [Unknown]
  - Autoimmune disorder [Unknown]
  - Craniofacial fracture [Unknown]
  - Cerebrovascular accident [Not Recovered/Not Resolved]
  - Scab [Unknown]
  - Product use complaint [Unknown]
  - Incorrect dose administered [Unknown]
  - Sinusitis [Unknown]
  - Ear pain [Unknown]
  - Pain in jaw [Unknown]
  - Dry mouth [Unknown]
  - Sciatica [Unknown]
  - Insurance issue [Unknown]
  - Illness [Unknown]
  - Feeling drunk [Unknown]
  - Fall [Unknown]
  - Epistaxis [Unknown]
  - Asthma [Unknown]
  - Migraine [Not Recovered/Not Resolved]
  - Fatigue [Unknown]

NARRATIVE: CASE EVENT DATE: 20240614
